FAERS Safety Report 9777726 (Version 3)
Quarter: 2014Q1

REPORT INFORMATION
  Report Type: Spontaneous
  Country: IT (occurrence: IT)
  Receive Date: 20131223
  Receipt Date: 20140116
  Transmission Date: 20141002
  Serious: Yes (Hospitalization, Other)
  Sender: FDA-Public Use
  Company Number: IT-009507513-1312ITA009453

PATIENT
  Age: 80 Year
  Sex: Male

DRUGS (3)
  1. LORTAAN 50 MG COMPRESSE RIVESTITE CON FILM [Suspect]
     Indication: HYPERTENSION
     Dosage: 50 MG, QD
     Route: 048
     Dates: start: 201111, end: 20131110
  2. LASIX (FUROSEMIDE) [Suspect]
     Indication: HYPERTENSION
     Dosage: 25 MG, QD
     Route: 048
     Dates: start: 201111
  3. ALDACTONE TABLETS [Suspect]
     Indication: HYPERTENSION
     Dosage: 25 MG, QD
     Route: 048
     Dates: start: 201111, end: 20131110

REACTIONS (2)
  - Pleural effusion [Not Recovered/Not Resolved]
  - Renal failure acute [Not Recovered/Not Resolved]
